FAERS Safety Report 8080952-1 (Version None)
Quarter: 2012Q1

REPORT INFORMATION
  Report Type: 
  Country: None (occurrence: None)
  Receive Date: 20120130
  Receipt Date: 20070809
  Transmission Date: 20120608
  Serious: Yes (Other)
  Sender: FDA-Public Use
  Company Number: JP-SANTEN INC.-INC-12-000005

PATIENT
  Age: 37 Year
  Sex: Female

DRUGS (1)
  1. LEVOFLOXACIN [Suspect]
     Indication: CONJUNCTIVITIS
     Dosage: 3 TIMES DAILY
     Route: 047
     Dates: start: 20070723, end: 20070726

REACTIONS (4)
  - EYE OEDEMA [None]
  - ANAPHYLACTIC SHOCK [None]
  - THROAT IRRITATION [None]
  - RHINORRHOEA [None]
